FAERS Safety Report 6695198-9 (Version None)
Quarter: 2010Q2

REPORT INFORMATION
  Report Type: 
  Country: None (occurrence: None)
  Receive Date: 20100423
  Receipt Date: 20100421
  Transmission Date: 20101027
  Serious: Yes (Hospitalization)
  Sender: FDA-Public Use
  Company Number: US-BIOGENIDEC-2010BI011893

PATIENT
  Age: 29 Year
  Sex: Female
  Weight: 96 kg

DRUGS (3)
  1. TYSABRI [Suspect]
     Indication: MULTIPLE SCLEROSIS
     Route: 042
     Dates: start: 20090716
  2. VITAMIN D [Concomitant]
     Indication: VITAMIN D DECREASED
     Route: 048
     Dates: start: 20090701, end: 20100401
  3. IRON SUPPLEMENT [Concomitant]
     Indication: BLOOD IRON DECREASED
     Route: 048
     Dates: start: 20090701, end: 20100331

REACTIONS (11)
  - BLEPHAROSPASM [None]
  - BLOOD IRON DECREASED [None]
  - DRY EYE [None]
  - FATIGUE [None]
  - HYPOTHYROIDISM [None]
  - MOBILITY DECREASED [None]
  - MULTIPLE SCLEROSIS [None]
  - MULTIPLE SCLEROSIS RELAPSE [None]
  - MYALGIA [None]
  - PARAESTHESIA [None]
  - VITAMIN D DECREASED [None]
